FAERS Safety Report 5619254-9 (Version None)
Quarter: 2008Q1

REPORT INFORMATION
  Report Type: 
  Country: None (occurrence: None)
  Receive Date: 20080205
  Receipt Date: 20080128
  Transmission Date: 20080703
  Serious: Yes (Other)
  Sender: FDA-Public Use
  Company Number: E2020-02195-SPO-AT

PATIENT
  Age: 71 Year
  Sex: Female
  Weight: 48 kg

DRUGS (15)
  1. ARICEPT [Suspect]
     Indication: DEMENTIA ALZHEIMER'S TYPE
     Dosage: 5 MG, 1 IN 1 D, ORAL
     Route: 048
     Dates: start: 20071205
  2. TRESLEEN (SERTRALINE) [Suspect]
     Dosage: 50 MG, ORAL
     Route: 048
     Dates: start: 20071113
  3. HALDOL SOLUTAB [Suspect]
     Dosage: 1.5 MG, INTRAVENOUS, 1 MG, INTRAVENOUS, 1.5 MG, INTRAVENOUS, 1 MG, INTRAVENOUS
     Route: 042
     Dates: start: 20071115, end: 20071123
  4. HALDOL SOLUTAB [Suspect]
     Dosage: 1.5 MG, INTRAVENOUS, 1 MG, INTRAVENOUS, 1.5 MG, INTRAVENOUS, 1 MG, INTRAVENOUS
     Route: 042
     Dates: start: 20071124, end: 20071130
  5. HALDOL SOLUTAB [Suspect]
     Dosage: 1.5 MG, INTRAVENOUS, 1 MG, INTRAVENOUS, 1.5 MG, INTRAVENOUS, 1 MG, INTRAVENOUS
     Route: 042
     Dates: start: 20071201, end: 20071222
  6. HALDOL SOLUTAB [Suspect]
     Dosage: 1.5 MG, INTRAVENOUS, 1 MG, INTRAVENOUS, 1.5 MG, INTRAVENOUS, 1 MG, INTRAVENOUS
     Route: 042
     Dates: start: 20071223
  7. SEROQUEL [Suspect]
     Dosage: 150 MG, ORAL, 200 MG, ORAL
     Route: 048
     Dates: start: 20070701, end: 20071112
  8. SEROQUEL [Suspect]
     Dosage: 150 MG, ORAL, 200 MG, ORAL
     Route: 048
     Dates: start: 20071113
  9. MIRTABENE (MIRTAZAPINE) [Concomitant]
  10. ALPRAZOLAM [Concomitant]
  11. NEXIUM [Concomitant]
  12. LEVOLAC (LACTULOSE) [Concomitant]
  13. GASTROZEPIN [Concomitant]
  14. FORTIMEL (PROTEIN-RICH LIQUID NUTRITION) [Concomitant]
  15. GENTAX (GENTAMICIN) [Concomitant]

REACTIONS (1)
  - PLEUROTHOTONUS [None]
